FAERS Safety Report 12662044 (Version 1)
Quarter: 2016Q3

REPORT INFORMATION
  Report Type: Spontaneous
  Country: US (occurrence: US)
  Receive Date: 20160817
  Receipt Date: 20160817
  Transmission Date: 20161109
  Serious: No
  Sender: FDA-Public Use
  Company Number: US-LUNDBECK-DKLU2016324

PATIENT
  Sex: Female

DRUGS (1)
  1. NORTHERA [Suspect]
     Active Substance: DROXIDOPA
     Indication: PARKINSON^S DISEASE
     Route: 048
     Dates: start: 20160617

REACTIONS (8)
  - Gait disturbance [Unknown]
  - Cognitive disorder [Unknown]
  - Asthenia [Unknown]
  - Dizziness [Unknown]
  - Fall [Unknown]
  - Hypotension [Unknown]
  - Hallucination, visual [Unknown]
  - Fatigue [Unknown]
